FAERS Safety Report 7507911-9 (Version None)
Quarter: 2011Q2

REPORT INFORMATION
  Report Type: 
  Country: None (occurrence: None)
  Receive Date: 20110527
  Receipt Date: 20110525
  Transmission Date: 20111010
  Serious: Yes (Other)
  Sender: FDA-Public Use
  Company Number: LU-BRISTOL-MYERS SQUIBB COMPANY-15622947

PATIENT
  Age: 67 Year
  Sex: Male

DRUGS (7)
  1. GLIMEPIRIDE [Concomitant]
  2. PANTOPRAZOLE [Concomitant]
  3. ORENCIA [Suspect]
     Indication: RHEUMATOID ARTHRITIS
     Dosage: 4TH INFUSION.
     Route: 042
     Dates: start: 20101118, end: 20110113
  4. ACETAMINOPHEN [Concomitant]
  5. METFORMINE CHLORHYDRATE [Concomitant]
  6. BEMETIZIDE + TRIAMTERENE [Concomitant]
     Dosage: FREQUENCY: 1/2 PER DAY
  7. TRAMADOL HCL [Concomitant]
     Dosage: 1DF: 50 UNITS NOS

REACTIONS (1)
  - RASH [None]
